FAERS Safety Report 24351373 (Version 1)
Quarter: 2024Q3

REPORT INFORMATION
  Report Type: Report from Study
  Country: PT (occurrence: PT)
  Receive Date: 20240923
  Receipt Date: 20240923
  Transmission Date: 20241017
  Serious: No
  Sender: ROCHE
  Company Number: PT-ROCHE-1998906

PATIENT
  Age: 29 Year
  Sex: Female
  Weight: 53.0 kg

DRUGS (16)
  1. HERCEPTIN [Suspect]
     Active Substance: TRASTUZUMAB
     Indication: HER2 positive breast cancer
     Dosage: MOST RECENT DOSE ON 23/NOV/2017
     Route: 041
     Dates: start: 20170621
  2. PERJETA [Suspect]
     Active Substance: PERTUZUMAB
     Indication: HER2 positive breast cancer
     Dosage: MOST RECENT DOSE ON 23/NOV/2017
     Route: 042
     Dates: start: 20170621
  3. TAXOTERE [Suspect]
     Active Substance: DOCETAXEL
     Indication: HER2 positive breast cancer
     Route: 042
     Dates: start: 20170621, end: 20171013
  4. EBASTINE [Concomitant]
     Active Substance: EBASTINE
  5. DEXAMETHASONE [Concomitant]
     Active Substance: DEXAMETHASONE
     Dates: start: 20170621, end: 20171123
  6. ONDANSETRON [Concomitant]
     Active Substance: ONDANSETRON
     Dates: start: 20170621, end: 20171123
  7. IVABRADINE [Concomitant]
     Active Substance: IVABRADINE
     Dosage: ONGOING = CHECKED
     Dates: start: 20170817
  8. BROMAZEPAM [Concomitant]
     Active Substance: BROMAZEPAM
  9. PREDNISOLONE [Concomitant]
     Active Substance: PREDNISOLONE
     Dates: start: 20170606
  10. METOCLOPRAMIDE [Concomitant]
     Active Substance: METOCLOPRAMIDE
     Dates: start: 20170606
  11. LACTULOSE [Concomitant]
     Active Substance: LACTULOSE
     Dates: start: 20170606
  12. CLEMASTINE [Concomitant]
     Active Substance: CLEMASTINE
     Dosage: ONGOING = CHECKED
     Dates: start: 20170621
  13. LOPERAMIDE [Concomitant]
     Active Substance: LOPERAMIDE
     Dates: start: 20170606
  14. PROPOFOL [Concomitant]
     Active Substance: PROPOFOL
     Dosage: ONGOING = NOT CHECKED 15/JUN/2017
     Dates: start: 20171109
  15. ROCURONIUM [Concomitant]
     Active Substance: ROCURONIUM BROMIDE
     Dosage: ONGOING = NOT CHECKED
     Dates: start: 20171109
  16. PARECOXIB [Concomitant]
     Active Substance: PARECOXIB
     Dosage: ONGOING = NOT CHECKED
     Dates: start: 20171109

REACTIONS (1)
  - Levator syndrome [Recovered/Resolved]

NARRATIVE: CASE EVENT DATE: 20170805
